FAERS Safety Report 16172260 (Version 1)
Quarter: 2019Q2

REPORT INFORMATION
  Report Type: Spontaneous
  Country: US (occurrence: US)
  Receive Date: 20190409
  Receipt Date: 20190409
  Transmission Date: 20190711
  Serious: Yes (Life-Threatening, Hospitalization, Other)
  Sender: FDA-Public Use
  Company Number: US-AXELLIA-002376

PATIENT
  Age: 69 Year
  Sex: Male

DRUGS (16)
  1. CLOZAPINE. [Suspect]
     Active Substance: CLOZAPINE
     Indication: SCHIZOPHRENIA
     Dosage: 200 MG NIGHTLY
  2. CLOZAPINE. [Suspect]
     Active Substance: CLOZAPINE
     Indication: SCHIZOPHRENIA
     Dosage: 50-MG INCREMENTS EVERY 7 TO 11 DAYS
  3. AMPICILLIN [Concomitant]
     Active Substance: AMPICILLIN
     Indication: EVIDENCE BASED TREATMENT
  4. HALOPERIDOL. [Suspect]
     Active Substance: HALOPERIDOL
     Indication: SCHIZOPHRENIA
  5. VORICONAZOLE. [Concomitant]
     Active Substance: VORICONAZOLE
     Indication: ANTIFUNGAL TREATMENT
  6. ACICLOVIR [Concomitant]
     Active Substance: ACYCLOVIR
     Indication: EVIDENCE BASED TREATMENT
  7. VANCOMYCIN [Suspect]
     Active Substance: VANCOMYCIN
     Indication: PHLEBITIS SUPERFICIAL
     Dosage: FOR SUPERFICIAL PHLEBITIS
  8. CLOZAPINE. [Suspect]
     Active Substance: CLOZAPINE
     Indication: SCHIZOPHRENIA
  9. OLANZAPINE. [Concomitant]
     Active Substance: OLANZAPINE
     Indication: SCHIZOPHRENIA
  10. AZITHROMYCIN ANHYDROUS. [Concomitant]
     Active Substance: AZITHROMYCIN ANHYDROUS
     Indication: LEGIONELLA INFECTION
  11. CEFEPIME [Concomitant]
     Active Substance: CEFEPIME HYDROCHLORIDE
     Indication: EVIDENCE BASED TREATMENT
  12. METRONIDAZOLE. [Concomitant]
     Active Substance: METRONIDAZOLE
     Indication: PNEUMONIA ASPIRATION
  13. VANCOMYCIN [Suspect]
     Active Substance: VANCOMYCIN
     Indication: PHLEBITIS SUPERFICIAL
     Dosage: ON DAY 2, EMPIRIC COVERAGE
  14. VALPROIC ACID. [Suspect]
     Active Substance: VALPROIC ACID
     Indication: SCHIZOPHRENIA
  15. HALOPERIDOL. [Suspect]
     Active Substance: HALOPERIDOL
     Indication: SCHIZOPHRENIA
  16. VANCOMYCIN [Suspect]
     Active Substance: VANCOMYCIN
     Indication: EVIDENCE BASED TREATMENT
     Dosage: ON DAY 2, EMPIRIC COVERAGE.

REACTIONS (9)
  - Pneumonia [Recovering/Resolving]
  - Klebsiella infection [Recovering/Resolving]
  - Atrial fibrillation [Recovered/Resolved]
  - Bacterial infection [Recovering/Resolving]
  - Unresponsive to stimuli [Recovered/Resolved]
  - Sepsis [Recovering/Resolving]
  - Phlebitis superficial [Unknown]
  - Agranulocytosis [Recovering/Resolving]
  - Pleural effusion [Recovering/Resolving]
